FAERS Safety Report 20099840 (Version 1)
Quarter: 2021Q4

REPORT INFORMATION
  Report Type: Report from Study
  Country: US (occurrence: US)
  Receive Date: 20211123
  Receipt Date: 20211123
  Transmission Date: 20220303
  Serious: Yes (Hospitalization)
  Sender: FDA-Public Use
  Company Number: ENDG21-07089

PATIENT
  Sex: Female

DRUGS (5)
  1. MEGACE ES [Suspect]
     Active Substance: MEGESTROL ACETATE
     Indication: Product used for unknown indication
     Dosage: UNK UNKNOWN, UNKNOWN
     Route: 065
  2. LENVIMA [Suspect]
     Active Substance: LENVATINIB
     Indication: Clear cell endometrial carcinoma
     Dosage: 10 MG, DAILY
     Route: 048
     Dates: start: 20210730, end: 20210819
  3. LENVIMA [Suspect]
     Active Substance: LENVATINIB
     Dosage: 20 MG, DAILY
     Route: 048
     Dates: start: 20210820, end: 20210919
  4. LENVIMA [Suspect]
     Active Substance: LENVATINIB
     Dosage: 10 MG, DAILY
     Route: 048
     Dates: start: 20211006
  5. KEYTRUDA [Concomitant]
     Active Substance: PEMBROLIZUMAB
     Indication: Clear cell endometrial carcinoma
     Dosage: UNK UNKNOWN, UNKNOWN
     Route: 042

REACTIONS (1)
  - Intestinal perforation [Unknown]

NARRATIVE: CASE EVENT DATE: 20210101
